FAERS Safety Report 18781567 (Version 1)
Quarter: 2021Q1

REPORT INFORMATION
  Report Type: Spontaneous
  Country: US (occurrence: US)
  Receive Date: 20210125
  Receipt Date: 20210125
  Transmission Date: 20210419
  Serious: Yes (Other)
  Sender: FDA-Public Use
  Company Number: US-DEXPHARM-20210036

PATIENT
  Sex: Male

DRUGS (1)
  1. LANSOPRAZOLELANSOPRAZOLE DELAYED RELEASE ORALLY DISINTEGRATING TAB... [Suspect]
     Active Substance: LANSOPRAZOLE
     Indication: GASTROOESOPHAGEAL REFLUX DISEASE
     Dosage: SINGLE
     Route: 048
     Dates: start: 20210110, end: 20210110

REACTIONS (4)
  - Lip swelling [Unknown]
  - Peripheral swelling [Unknown]
  - Urticaria [Unknown]
  - Arthralgia [Recovering/Resolving]

NARRATIVE: CASE EVENT DATE: 20210110
